FAERS Safety Report 4679683-7 (Version None)
Quarter: 2005Q2

REPORT INFORMATION
  Report Type: 
  Country: None (occurrence: None)
  Receive Date: 20050602
  Receipt Date: 20050524
  Transmission Date: 20051028
  Serious: Yes (Death)
  Sender: FDA-Public Use
  Company Number: JP-JNJFOC-20050304268

PATIENT
  Sex: Male

DRUGS (11)
  1. DUROTEP [Suspect]
     Route: 062
     Dates: start: 20040407
  2. DUROTEP [Suspect]
     Route: 062
     Dates: start: 20040407
  3. DUROTEP [Suspect]
     Route: 062
     Dates: start: 20040407
  4. DUROTEP [Suspect]
     Route: 062
     Dates: start: 20040407
  5. DUROTEP [Suspect]
     Indication: CANCER PAIN
     Route: 062
     Dates: start: 20040407
  6. MORPHINE HCL ELIXIR [Concomitant]
  7. MORPHINE HCL ELIXIR [Concomitant]
     Route: 042
  8. METOCLOPRAMIDE [Concomitant]
     Route: 042
  9. DEXAMETHASONE SODIUM PHOSPHATE [Concomitant]
     Route: 042
  10. FUROSEMIDE [Concomitant]
     Route: 042
  11. INSULIN HUMAN (GENETICAL RECOMBINATION) [Concomitant]
     Dosage: 20 DOSAGE FORM DAY, INTRAVENOUS
     Route: 042

REACTIONS (10)
  - APPLICATION SITE DERMATITIS [None]
  - APPLICATION SITE ERYTHEMA [None]
  - APPLICATION SITE OEDEMA [None]
  - APPLICATION SITE PRURITUS [None]
  - EPIDERMOLYSIS [None]
  - EXCORIATION [None]
  - MALIGNANT NEOPLASM PROGRESSION [None]
  - MALNUTRITION [None]
  - PANCREATIC CARCINOMA [None]
  - PANCREATIC CARCINOMA METASTATIC [None]
